FAERS Safety Report 7395039-0 (Version None)
Quarter: 2011Q2

REPORT INFORMATION
  Report Type: 
  Country: None (occurrence: None)
  Receive Date: 20110405
  Receipt Date: 20110330
  Transmission Date: 20111010
  Serious: Yes (Other)
  Sender: FDA-Public Use
  Company Number: NL-TEVA-274097USA

PATIENT
  Age: 46 Year
  Sex: Male

DRUGS (3)
  1. BROMPERIDOL [Suspect]
     Indication: PSYCHOTIC DISORDER
  2. RISPERIDONE [Suspect]
     Indication: PSYCHOTIC DISORDER
  3. PIMOZIDE TABLETS [Suspect]
     Indication: PSYCHOTIC DISORDER

REACTIONS (2)
  - HAEMORRHAGE [None]
  - GOITRE [None]
